FAERS Safety Report 4293262-5 (Version None)
Quarter: 2004Q1

REPORT INFORMATION
  Report Type: 
  Country: None (occurrence: None)
  Receive Date: 20040210
  Receipt Date: 20040204
  Transmission Date: 20041129
  Serious: Yes (Other)
  Sender: FDA-Public Use
  Company Number: US-JNJFOC-20030906282

PATIENT
  Age: 38 Year
  Sex: Female
  Weight: 86.1834 kg

DRUGS (5)
  1. ULTRACET [Suspect]
     Indication: MYALGIA
     Dates: start: 20030630, end: 20030923
  2. FLEXERIL (CYCLOBENZAPRINE HYDROCHLORIE) TABLETS [Concomitant]
  3. ALCOHOL (ETHANOL) [Concomitant]
  4. ULTRAM [Concomitant]
  5. VOLTAREN [Concomitant]

REACTIONS (2)
  - APNOEA [None]
  - RESPIRATORY ARREST [None]
